FAERS Safety Report 5953801-2 (Version None)
Quarter: 2008Q4

REPORT INFORMATION
  Report Type: 
  Country: None (occurrence: None)
  Receive Date: 20081114
  Receipt Date: 20081110
  Transmission Date: 20090506
  Serious: Yes (Life-Threatening, Hospitalization, Other)
  Sender: FDA-Public Use
  Company Number: US-ABBOTT-08P-163-0486820-00

PATIENT
  Sex: Male
  Weight: 63.56 kg

DRUGS (6)
  1. HUMIRA [Suspect]
     Indication: CROHN'S DISEASE
     Route: 058
     Dates: start: 20080201, end: 20080601
  2. HUMIRA [Suspect]
     Route: 058
     Dates: start: 20080801
  3. VICODIN [Concomitant]
     Indication: PROCEDURAL PAIN
     Route: 048
     Dates: start: 20071201, end: 20080601
  4. VICODIN [Concomitant]
     Indication: ABSCESS
  5. IMURAN [Concomitant]
     Indication: CROHN'S DISEASE
     Route: 048
     Dates: start: 20040101
  6. CYPROHEPTADINE HYDROCHLORIDE [Concomitant]
     Indication: ABSCESS
     Route: 048
     Dates: start: 20080301, end: 20080601

REACTIONS (7)
  - ABSCESS [None]
  - BACK PAIN [None]
  - COLONIC STENOSIS [None]
  - FLANK PAIN [None]
  - PAIN [None]
  - PROCEDURAL PAIN [None]
  - PYREXIA [None]
